FAERS Safety Report 10305631 (Version 1)
Quarter: 2014Q3

REPORT INFORMATION
  Report Type: Spontaneous
  Country: FR (occurrence: FR)
  Receive Date: 20140715
  Receipt Date: 20140715
  Transmission Date: 20150326
  Serious: Yes (Hospitalization, Other)
  Sender: FDA-Public Use
  Company Number: FR-ASTRAZENECA-2014SE49375

PATIENT
  Age: 24 Year
  Sex: Female

DRUGS (3)
  1. PULMICORT TURBUHALER [Suspect]
     Active Substance: BUDESONIDE
     Indication: ASTHMA
     Route: 055
     Dates: start: 20140617, end: 20140618
  2. CIFLOX [Suspect]
     Active Substance: CIPROFLOXACIN
     Indication: SINUSITIS
     Route: 048
     Dates: start: 20140617, end: 20140618
  3. SOLUPRED [Suspect]
     Active Substance: PREDNISOLONE
     Indication: SINUSITIS
     Route: 048
     Dates: start: 20140617, end: 20140618

REACTIONS (5)
  - Urticaria [Unknown]
  - Rhinorrhoea [Unknown]
  - Wheezing [Unknown]
  - Dyspnoea [Unknown]
  - Angioedema [Recovered/Resolved]

NARRATIVE: CASE EVENT DATE: 20140618
